FAERS Safety Report 20208963 (Version 1)
Quarter: 2021Q4

REPORT INFORMATION
  Report Type: Report from Study
  Country: US (occurrence: US)
  Receive Date: 20211220
  Receipt Date: 20211220
  Transmission Date: 20220303
  Serious: No
  Sender: FDA-Public Use
  Company Number: US-SUNOVION-2021SUN004639

PATIENT
  Age: 52 Year
  Sex: Female

DRUGS (1)
  1. KYNMOBI [Suspect]
     Active Substance: APOMORPHINE HYDROCHLORIDE
     Indication: Parkinson^s disease
     Dosage: 10 MG
     Route: 060
     Dates: start: 20211208

REACTIONS (4)
  - Feeling jittery [Recovered/Resolved]
  - Dysstasia [Unknown]
  - Musculoskeletal stiffness [Unknown]
  - Product use complaint [Unknown]

NARRATIVE: CASE EVENT DATE: 20211208
